FAERS Safety Report 19725696 (Version 1)
Quarter: 2021Q3

REPORT INFORMATION
  Report Type: Spontaneous
  Country: US (occurrence: US)
  Receive Date: 20210820
  Receipt Date: 20210820
  Transmission Date: 20211014
  Serious: No
  Sender: FDA-Public Use
  Company Number: US-SUN PHARMACEUTICAL INDUSTRIES LTD-2020R1-269159

PATIENT
  Sex: Female
  Weight: 54 kg

DRUGS (1)
  1. SULPHAMETHOXAZOLE/TRIMETHOPRIM [Suspect]
     Active Substance: SULFAMETHOXAZOLE\TRIMETHOPRIM
     Indication: ACNE
     Dosage: UNK
     Route: 065
     Dates: start: 2017

REACTIONS (4)
  - Illness [Unknown]
  - Drug ineffective [Unknown]
  - Nausea [Unknown]
  - Abdominal distension [Unknown]
